FAERS Safety Report 14308689 (Version 2)
Quarter: 2019Q3

REPORT INFORMATION
  Report Type: Report from Study
  Country: US (occurrence: US)
  Receive Date: 20171220
  Receipt Date: 20190821
  Transmission Date: 20191004
  Serious: Yes (Other)
  Sender: FDA-Public Use
  Company Number: PHEH2017US040501

PATIENT
  Sex: Female

DRUGS (1)
  1. GLEEVEC [Suspect]
     Active Substance: IMATINIB MESYLATE
     Indication: PRODUCT USED FOR UNKNOWN INDICATION
     Dosage: UNK
     Route: 065

REACTIONS (8)
  - Ovarian disorder [Unknown]
  - Confusional state [Unknown]
  - Alopecia [Unknown]
  - Leukaemia [Unknown]
  - Metrorrhagia [Unknown]
  - White blood cell count decreased [Unknown]
  - Fatigue [Unknown]
  - Breast cancer [Unknown]
